FAERS Safety Report 8993226 (Version 2)
Quarter: 2013Q1

REPORT INFORMATION
  Report Type: Spontaneous
  Country: CA (occurrence: CA)
  Receive Date: 20130102
  Receipt Date: 20130111
  Transmission Date: 20140127
  Serious: Yes (Death)
  Sender: FDA-Public Use
  Company Number: CA-ALEXION-A201202480

PATIENT
  Age: 73 Year
  Sex: Female

DRUGS (13)
  1. SOLIRIS 300MG [Suspect]
     Indication: PAROXYSMAL NOCTURNAL HAEMOGLOBINURIA
     Dosage: 600 MG, QW
     Route: 042
     Dates: start: 20100406, end: 20100429
  2. SOLIRIS 300MG [Suspect]
     Dosage: 900 MG, Q2W
     Route: 042
     Dates: start: 20100506
  3. ZOPICLONE [Concomitant]
     Dosage: 7.5 MG, QD HS
  4. FOLIC ACID [Concomitant]
     Dosage: 3 MG, UNK
  5. VENTOLIN [Concomitant]
     Dosage: UNK, PRN
  6. ATENOLOL [Concomitant]
     Dosage: 50 MG, QD
     Route: 048
     Dates: start: 20120120
  7. RAMIPRIL [Concomitant]
     Dosage: 5 MG, BID
     Route: 048
     Dates: start: 20120120
  8. LASIX [Concomitant]
     Dosage: 20 MG, QOD
     Route: 048
     Dates: start: 2012
  9. FRAGMIN [Concomitant]
     Dosage: 10000 IU, QD
     Route: 058
  10. PRAZOLE [Concomitant]
     Dosage: 30 MG, QD
  11. MULTIVITAMIN [Concomitant]
     Dosage: UNK, QD
  12. CALCIUM + VITAMIN D [Concomitant]
     Dosage: UNK, QD
  13. NITRO DUR [Concomitant]
     Dosage: UNK, PRN

REACTIONS (1)
  - Cardiac disorder [Fatal]
